FAERS Safety Report 9897321 (Version 1)
Quarter: 2014Q1

REPORT INFORMATION
  Report Type: Spontaneous
  Country: US (occurrence: US)
  Receive Date: 20140214
  Receipt Date: 20140214
  Transmission Date: 20141002
  Serious: Yes (Hospitalization)
  Sender: FDA-Public Use
  Company Number: US-JNJFOC-20140203440

PATIENT
  Age: 24 Year
  Sex: Male

DRUGS (2)
  1. INVEGA SUSTENNA [Suspect]
     Indication: SCHIZOPHRENIA
     Route: 030
     Dates: start: 20140131
  2. INVEGA [Suspect]
     Indication: SCHIZOPHRENIA
     Route: 048

REACTIONS (4)
  - Throat tightness [Recovering/Resolving]
  - Dystonia [Recovering/Resolving]
  - Nonspecific reaction [Unknown]
  - Anxiety [Recovering/Resolving]
